FAERS Safety Report 9471458 (Version 2)
Quarter: 2013Q4

REPORT INFORMATION
  Report Type: Spontaneous
  Country: US (occurrence: US)
  Receive Date: 20130822
  Receipt Date: 20131113
  Transmission Date: 20140711
  Serious: Yes (Other)
  Sender: FDA-Public Use
  Company Number: US-TEVA-427273USA

PATIENT
  Age: 30 Year
  Sex: Female
  Weight: 136.2 kg

DRUGS (13)
  1. PARAGARD 380A [Suspect]
     Indication: CONTRACEPTION
     Route: 015
     Dates: start: 20130425, end: 20130805
  2. ASPIRIN [Concomitant]
     Indication: CEREBROVASCULAR ACCIDENT PROPHYLAXIS
  3. VITAMIN D [Concomitant]
     Indication: VITAMIN SUPPLEMENTATION
  4. LISINOPRIL [Concomitant]
     Indication: HYPERTENSION
  5. ALLOPURINOL [Concomitant]
     Indication: RENAL IMPAIRMENT
  6. POTASSIUM CITRATE [Concomitant]
     Indication: RENAL IMPAIRMENT
  7. MAGNESIUM OXIDE [Concomitant]
     Indication: CARDIAC DISORDER
  8. LEVOTHYROXINE [Concomitant]
     Indication: THYROID DISORDER
  9. CALCIUM CITRATE [Concomitant]
     Indication: SUPPLEMENTATION THERAPY
  10. PREDNISONE [Concomitant]
     Indication: ASTHMA
  11. VITAMIN C [Concomitant]
     Indication: SUPPLEMENTATION THERAPY
  12. PROVAIR [Concomitant]
     Indication: ASTHMA
  13. FLUSICOSONE [Concomitant]
     Indication: HYPERSENSITIVITY

REACTIONS (1)
  - Device dislocation [Recovered/Resolved]
